FAERS Safety Report 15309324 (Version 1)
Quarter: 2018Q3

REPORT INFORMATION
  Report Type: Spontaneous
  Country: US (occurrence: US)
  Receive Date: 20180811
  Receipt Date: 20180811
  Transmission Date: 20181010
  Serious: Yes (Other)
  Sender: FDA-Public Use
  Company Number: None

PATIENT
  Age: 22 Year
  Sex: Female

DRUGS (2)
  1. MULTIVITAMIN [Concomitant]
     Active Substance: VITAMINS
  2. ACYCLOVIR 400 MG [Suspect]
     Active Substance: ACYCLOVIR
     Indication: ORAL HERPES
     Dosage: ?          QUANTITY:1 TABLET(S);?EVERY 8 HOURS ORAL
     Route: 048

REACTIONS (7)
  - Therapy cessation [None]
  - Diarrhoea [None]
  - Tremor [None]
  - Lethargy [None]
  - Confusional state [None]
  - Myalgia [None]
  - Nausea [None]

NARRATIVE: CASE EVENT DATE: 20180723
